FAERS Safety Report 23451515 (Version 2)
Quarter: 2024Q1

REPORT INFORMATION
  Report Type: Spontaneous
  Country: ES (occurrence: ES)
  Receive Date: 20240129
  Receipt Date: 20240206
  Transmission Date: 20240410
  Serious: Yes (Other)
  Sender: FDA-Public Use
  Company Number: ES-SAMSUNG BIOEPIS-SB-2022-27936

PATIENT
  Age: 26 Year
  Sex: Male

DRUGS (13)
  1. CLOBETASOL [Suspect]
     Active Substance: CLOBETASOL
     Indication: Alopecia scarring
     Dosage: UNK
     Route: 061
  2. TRIAMCINOLONE DIACETATE [Suspect]
     Active Substance: TRIAMCINOLONE DIACETATE
     Indication: Alopecia scarring
     Dosage: UNK
  3. ADALIMUMAB [Suspect]
     Active Substance: ADALIMUMAB\ISOPROPYL ALCOHOL
     Indication: Alopecia scarring
     Dosage: 80 MG AT WEEK 2
     Route: 058
  4. ADALIMUMAB [Suspect]
     Active Substance: ADALIMUMAB\ISOPROPYL ALCOHOL
     Dosage: 160 MG AT WEEK 0
     Route: 058
  5. ADALIMUMAB [Suspect]
     Active Substance: ADALIMUMAB\ISOPROPYL ALCOHOL
     Dosage: 40 MG, Q2W
     Route: 058
  6. IXEKIZUMAB [Suspect]
     Active Substance: IXEKIZUMAB
     Indication: Alopecia scarring
     Dosage: 160 MG,AT WEEK ZERO
     Route: 058
  7. IXEKIZUMAB [Suspect]
     Active Substance: IXEKIZUMAB
     Dosage: AT WEEK TWO, FOUR, SIX, EIGHT, TEN, TWELVE
     Route: 058
  8. IXEKIZUMAB [Suspect]
     Active Substance: IXEKIZUMAB
     Dosage: 80 MG, FROM THE 16 WEEKS (12 WEEKS)
     Route: 058
  9. RIFAMPIN [Concomitant]
     Active Substance: RIFAMPIN
     Indication: Alopecia scarring
     Dosage: UNK
  10. CLINDAMYCIN [Concomitant]
     Active Substance: CLINDAMYCIN
     Indication: Alopecia scarring
     Dosage: UNK
  11. DOXYCYCLINE [Concomitant]
     Active Substance: DOXYCYCLINE
     Indication: Alopecia scarring
     Dosage: UNK
  12. ISOTRETINOIN [Concomitant]
     Active Substance: ISOTRETINOIN
     Indication: Alopecia scarring
     Dosage: UNK
  13. DAPSONE [Concomitant]
     Active Substance: DAPSONE
     Indication: Alopecia scarring
     Dosage: UNK
     Route: 048

REACTIONS (6)
  - Paradoxical drug reaction [Recovered/Resolved]
  - Scab [Recovered/Resolved]
  - Pustule [Recovered/Resolved]
  - Erythema [Recovered/Resolved]
  - Alopecia scarring [Recovering/Resolving]
  - Skin candida [Unknown]
